FAERS Safety Report 19820421 (Version 1)
Quarter: 2021Q3

REPORT INFORMATION
  Report Type: Spontaneous
  Country: NL (occurrence: NL)
  Receive Date: 20210913
  Receipt Date: 20210913
  Transmission Date: 20211014
  Serious: Yes (Hospitalization)
  Sender: FDA-Public Use
  Company Number: NL-MYLANLABS-2021M1060949

PATIENT
  Age: 70 Year
  Sex: Male
  Weight: 73 kg

DRUGS (5)
  1. CLINDAMYCIN. [Suspect]
     Active Substance: CLINDAMYCIN
     Indication: DENTAL PROSTHESIS PLACEMENT
     Dosage: 300 MILLIGRAM, Q6H, DAARNA 4 X DAAGS 1 CAPSULE,
     Dates: start: 202104
  2. VERAPAMIL [Concomitant]
     Active Substance: VERAPAMIL HYDROCHLORIDE
     Dosage: 120 MILLIGRAM, TABLET MET GEREGULEERDE AFGIFTE, 120 MG (MILLIGRAM)
  3. ADALIMUMAB [Concomitant]
     Active Substance: ADALIMUMAB
     Dosage: 100 MILLIGRAM, INJECTIEVLOEISTOF, 100 MG/ML (MILLIGRAM PER MILLILITER)
  4. CLINDAMYCIN. [Suspect]
     Active Substance: CLINDAMYCIN
     Dosage: VOOR DE INGREEP 2 CAPSULES,
     Dates: start: 20210407, end: 20210407
  5. CANDESARTAN. [Concomitant]
     Active Substance: CANDESARTAN
     Dosage: 16 MILLIGRAM, TABLET, 16 MG (MILLIGRAM)

REACTIONS (5)
  - Peripheral swelling [Recovering/Resolving]
  - Pyrexia [Recovering/Resolving]
  - Erythema [Recovering/Resolving]
  - Rash [Recovering/Resolving]
  - Skin exfoliation [Recovering/Resolving]

NARRATIVE: CASE EVENT DATE: 20210407
